FAERS Safety Report 24305902 (Version 1)
Quarter: 2024Q3

REPORT INFORMATION
  Report Type: Spontaneous
  Country: GB (occurrence: GB)
  Receive Date: 20240911
  Receipt Date: 20240911
  Transmission Date: 20241017
  Serious: Yes (Other)
  Sender: Haleon PLC
  Company Number: XI-HALEON-2196142

PATIENT
  Sex: Female

DRUGS (1)
  1. TERBINAFINE [Suspect]
     Active Substance: TERBINAFINE
     Indication: Onychomycosis
     Route: 065

REACTIONS (4)
  - Ageusia [Not Recovered/Not Resolved]
  - Headache [Recovering/Resolving]
  - Dysgeusia [Recovering/Resolving]
  - Nausea [Not Recovered/Not Resolved]
